FAERS Safety Report 6292283-0 (Version None)
Quarter: 2009Q3

REPORT INFORMATION
  Report Type: 
  Country: None (occurrence: None)
  Receive Date: 20090730
  Receipt Date: 20090730
  Transmission Date: 20100115
  Serious: Yes (Other)
  Sender: FDA-Public Use
  Company Number: None

PATIENT
  Sex: Female
  Weight: 68.9467 kg

DRUGS (1)
  1. TEGRETOL [Suspect]
     Dosage: 200 MG TID
     Dates: start: 19920101

REACTIONS (4)
  - DRUG HYPERSENSITIVITY [None]
  - NAUSEA [None]
  - PRODUCT SUBSTITUTION ISSUE [None]
  - VOMITING [None]
